FAERS Safety Report 14333147 (Version 3)
Quarter: 2018Q1

REPORT INFORMATION
  Report Type: Spontaneous
  Country: JP (occurrence: JP)
  Receive Date: 20171228
  Receipt Date: 20180125
  Transmission Date: 20180509
  Serious: Yes (Other)
  Sender: FDA-Public Use
  Company Number: JP-ASTRAZENECA-2017SF31246

PATIENT
  Age: 66 Year
  Sex: Male

DRUGS (1)
  1. NEXIUM [Suspect]
     Active Substance: ESOMEPRAZOLE MAGNESIUM
     Indication: HAEMORRHAGE PROPHYLAXIS
     Route: 048
     Dates: start: 2017

REACTIONS (4)
  - Pancreatic neuroendocrine tumour [Unknown]
  - Product use in unapproved indication [Unknown]
  - Blood gastrin increased [Unknown]
  - Off label use [Unknown]

NARRATIVE: CASE EVENT DATE: 20171220
